FAERS Safety Report 8840785 (Version 1)
Quarter: 2012Q4

REPORT INFORMATION
  Report Type: 
  Country: US (occurrence: US)
  Receive Date: 20121015
  Receipt Date: 20121015
  Transmission Date: 20130627
  Serious: Yes (Other)
  Sender: FDA-Public Use
  Company Number: US-ROCHE-1140503

PATIENT
  Sex: Female
  Weight: 83.2 kg

DRUGS (2)
  1. NUTROPIN AQ [Suspect]
     Indication: PRADER-WILLI SYNDROME
     Route: 058
  2. PROZAC [Concomitant]
     Route: 065

REACTIONS (2)
  - Scoliosis [Unknown]
  - Abnormal behaviour [Unknown]
